FAERS Safety Report 7616725-0 (Version None)
Quarter: 2011Q3

REPORT INFORMATION
  Report Type: 
  Country: None (occurrence: None)
  Receive Date: 20110718
  Receipt Date: 20110706
  Transmission Date: 20111222
  Serious: Yes (Hospitalization)
  Sender: FDA-Public Use
  Company Number: US-BIOGENIDEC-2011BI016968

PATIENT
  Age: 36 Year
  Sex: Male

DRUGS (2)
  1. CLARITIN [Concomitant]
     Indication: PREMEDICATION
     Dates: start: 20110301
  2. TYSABRI [Suspect]
     Indication: MULTIPLE SCLEROSIS
     Route: 042
     Dates: start: 20110215, end: 20110416

REACTIONS (4)
  - MUSCULAR WEAKNESS [None]
  - HEADACHE [None]
  - PAIN [None]
  - AMNESIA [None]
